FAERS Safety Report 23680726 (Version 2)
Quarter: 2024Q2

REPORT INFORMATION
  Report Type: Spontaneous
  Country: JP (occurrence: JP)
  Receive Date: 20240328
  Receipt Date: 20240501
  Transmission Date: 20240715
  Serious: No
  Sender: FDA-Public Use
  Company Number: JP-002147023-NVSJ2024JP003772

PATIENT
  Sex: Female

DRUGS (1)
  1. ENTRESTO [Suspect]
     Active Substance: SACUBITRIL\VALSARTAN
     Indication: Hypertension
     Dosage: UNK
     Route: 048

REACTIONS (2)
  - Blood aldosterone increased [Unknown]
  - Renin increased [Unknown]

NARRATIVE: CASE EVENT DATE: 20240301
